FAERS Safety Report 8460218-8 (Version None)
Quarter: 2012Q2

REPORT INFORMATION
  Report Type: 
  Country: None (occurrence: None)
  Receive Date: 20120622
  Receipt Date: 20120613
  Transmission Date: 20120825
  Serious: Yes (Other)
  Sender: FDA-Public Use
  Company Number: CA-ASTRAZENECA-2012SE41166

PATIENT

DRUGS (3)
  1. KEFLEX [Concomitant]
  2. LASIX [Concomitant]
  3. SYNAGIS [Suspect]
     Route: 030

REACTIONS (2)
  - PALLOR [None]
  - CYANOSIS [None]
